FAERS Safety Report 24419665 (Version 1)
Quarter: 2024Q4

REPORT INFORMATION
  Report Type: Spontaneous
  Country: US (occurrence: US)
  Receive Date: 20241010
  Receipt Date: 20241010
  Transmission Date: 20250115
  Serious: No
  Sender: Haleon PLC
  Company Number: US-HALEON-2200366

PATIENT

DRUGS (2)
  1. ADVIL [Suspect]
     Active Substance: IBUPROFEN
     Indication: Arthritis
  2. ADVIL [Suspect]
     Active Substance: IBUPROFEN
     Indication: Sleep disorder

REACTIONS (1)
  - Product use in unapproved indication [Unknown]
